FAERS Safety Report 8301468-0 (Version None)
Quarter: 2012Q2

REPORT INFORMATION
  Report Type: 
  Country: None (occurrence: None)
  Receive Date: 20120420
  Receipt Date: 20120416
  Transmission Date: 20120825
  Serious: Yes (Other)
  Sender: FDA-Public Use
  Company Number: PHEH2012US004882

PATIENT
  Sex: Male
  Weight: 66.23 kg

DRUGS (9)
  1. ALBUTEROL [Concomitant]
     Dosage: 2 DF, PRN
  2. CREON [Concomitant]
     Route: 048
  3. TOBI [Suspect]
     Indication: SPUTUM CULTURE
  4. AZITHROMYCIN [Concomitant]
     Dosage: 500 MG, UNK
     Route: 048
  5. TOBI [Suspect]
     Indication: CYSTIC FIBROSIS
     Dosage: 300 MG, BID
     Dates: start: 20120206
  6. NERIUM [Concomitant]
     Dosage: 40 MG, QD
     Route: 048
  7. ADVAIR DISKUS 100/50 [Concomitant]
     Indication: CYSTIC FIBROSIS
     Dosage: 2 DF, BID
  8. TOBI [Suspect]
     Indication: PSEUDOMONAS INFECTION
  9. PULMOZYME [Concomitant]
     Dosage: 2.5 MG, QD

REACTIONS (2)
  - DYSPNOEA [None]
  - OROPHARYNGEAL SWELLING [None]
